FAERS Safety Report 8619559-3 (Version None)
Quarter: 2012Q3

REPORT INFORMATION
  Report Type: 
  Country: None (occurrence: None)
  Receive Date: 20120824
  Receipt Date: 20120424
  Transmission Date: 20120928
  Serious: No
  Sender: FDA-Public Use
  Company Number: US-ASTRAZENECA-2012SE23674

PATIENT
  Age: 69 Year
  Sex: Female
  Weight: 56.7 kg

DRUGS (11)
  1. SYMBICORT [Suspect]
     Indication: ASTHMA
     Dosage: 160/4.5 MCG, 1 PUFF  BID
     Route: 055
  2. SINGULAIR [Concomitant]
     Indication: ASTHMA
     Route: 065
  3. SYMBICORT [Suspect]
     Dosage: 80/4.5 MCG, 1 PUFF  BID
     Route: 055
  4. MULTIPLE VITAMIN WITH HERBAL SUPPLEMENT [Concomitant]
  5. LEVOTHYROXINE SODIUM [Concomitant]
     Indication: HYPOTHYROIDISM
     Route: 065
  6. VENTOLIN [Concomitant]
     Dosage: AS REQUIRED
     Route: 065
  7. XOLAIR [Concomitant]
     Dosage: MONTHLY
     Route: 065
  8. NITROFURANTOIN [Concomitant]
     Route: 065
  9. MULTIVITAMIN WITH IRON [Concomitant]
  10. CALCIUM WITH VITAMIN D [Concomitant]
     Route: 065
  11. SINGULAIR [Concomitant]
     Indication: MULTIPLE ALLERGIES
     Route: 065

REACTIONS (7)
  - DYSPNOEA [None]
  - RESPIRATORY TRACT INFECTION [None]
  - DRUG INEFFECTIVE [None]
  - WHEEZING [None]
  - HYPOXIA [None]
  - DYSPHONIA [None]
  - OFF LABEL USE [None]
